FAERS Safety Report 12390510 (Version 2)
Quarter: 2016Q4

REPORT INFORMATION
  Report Type: Spontaneous
  Country: US (occurrence: US)
  Receive Date: 20160520
  Receipt Date: 20161216
  Transmission Date: 20170207
  Serious: Yes (Other)
  Sender: FDA-Public Use
  Company Number: US-009507513-1605USA008936

PATIENT
  Sex: Female

DRUGS (1)
  1. IMPLANON [Suspect]
     Active Substance: ETONOGESTREL
     Indication: CONTRACEPTION
     Dosage: UNK
     Route: 059
     Dates: start: 20120626

REACTIONS (13)
  - Haematuria [Unknown]
  - Flank pain [Unknown]
  - Substance use [Recovered/Resolved]
  - Diabetes mellitus inadequate control [Unknown]
  - Migration of implanted drug [Not Recovered/Not Resolved]
  - Incorrect drug administration duration [Not Recovered/Not Resolved]
  - Haemangioma [Unknown]
  - Myalgia [Unknown]
  - Complication associated with device [Unknown]
  - Dysuria [Recovering/Resolving]
  - Menstruation delayed [Unknown]
  - Unintended pregnancy [Unknown]
  - Complication of device removal [Not Recovered/Not Resolved]

NARRATIVE: CASE EVENT DATE: 201506
